FAERS Safety Report 13180751 (Version 1)
Quarter: 2017Q1

REPORT INFORMATION
  Report Type: Spontaneous
  Country: US (occurrence: US)
  Receive Date: 20170202
  Receipt Date: 20170202
  Transmission Date: 20170428
  Serious: No
  Sender: FDA-Public Use
  Company Number: US-SMITH AND NEPHEW, INC-2016SMT00689

PATIENT
  Sex: Female
  Weight: 113.38 kg

DRUGS (4)
  1. SANTYL CREAM [Concomitant]
  2. DOXYCYCLINE. [Concomitant]
     Active Substance: DOXYCYCLINE
     Dosage: 100 MG, 2X/DAY
  3. UNSPECIFIED MEDICATIONS [Concomitant]
     Active Substance: UNSPECIFIED INGREDIENT
  4. REGRANEX [Suspect]
     Active Substance: BECAPLERMIN
     Indication: DIABETIC FOOT
     Dosage: 12 HOURS ON/ 12HOURS OFF
     Dates: start: 201607

REACTIONS (2)
  - Infection [Not Recovered/Not Resolved]
  - Wound complication [Recovering/Resolving]

NARRATIVE: CASE EVENT DATE: 2016
